FAERS Safety Report 7195886-4 (Version None)
Quarter: 2010Q4

REPORT INFORMATION
  Report Type: 
  Country: None (occurrence: None)
  Receive Date: 20101223
  Receipt Date: 20101011
  Transmission Date: 20110411
  Serious: No
  Sender: FDA-Public Use
  Company Number: US-AMGEN-KDL444527

PATIENT

DRUGS (6)
  1. ENBREL [Suspect]
     Indication: PRODUCT USED FOR UNKNOWN INDICATION
     Dosage: 50 MG, QWK
     Route: 058
  2. FUROSEMIDE [Concomitant]
     Dosage: 20 MG, UNK
     Route: 048
  3. GLIPIZIDE [Concomitant]
     Dosage: 10 MG, UNK
     Route: 048
  4. PRAVASTATIN [Concomitant]
     Dosage: 10 MG, UNK
     Route: 048
  5. HYDROXYCHLOROQUINE [Concomitant]
     Dosage: 200 MG, UNK
     Route: 048
  6. VERAPAMIL [Concomitant]
     Dosage: 100 MG, UNK
     Route: 048

REACTIONS (1)
  - THERAPEUTIC RESPONSE DECREASED [None]
